FAERS Safety Report 6787574-0 (Version None)
Quarter: 2010Q2

REPORT INFORMATION
  Report Type: 
  Country: None (occurrence: None)
  Receive Date: 20100623
  Receipt Date: 20030203
  Transmission Date: 20101027
  Serious: No
  Sender: FDA-Public Use
  Company Number: US-PFIZER INC-2007056364

PATIENT
  Sex: Female

DRUGS (1)
  1. LATANOPROST [Suspect]

REACTIONS (1)
  - OCULAR HYPERAEMIA [None]
